FAERS Safety Report 12501224 (Version 2)
Quarter: 2018Q1

REPORT INFORMATION
  Report Type: Spontaneous
  Country: IT (occurrence: IT)
  Receive Date: 20160627
  Receipt Date: 20180306
  Transmission Date: 20180508
  Serious: Yes (Death, Other)
  Sender: FDA-Public Use
  Company Number: PHHY2016IT087396

PATIENT
  Sex: Female

DRUGS (1)
  1. ZOMETA [Suspect]
     Active Substance: ZOLEDRONIC ACID
     Indication: METASTASES TO BONE
     Dosage: UNK
     Route: 065
     Dates: start: 200410

REACTIONS (5)
  - Metastases to central nervous system [Unknown]
  - Metastases to pleura [Unknown]
  - Injury [Fatal]
  - Osteonecrosis of jaw [Unknown]
  - Cardiovascular insufficiency [Fatal]
